FAERS Safety Report 5703425-7 (Version None)
Quarter: 2008Q2

REPORT INFORMATION
  Report Type: 
  Country: None (occurrence: None)
  Receive Date: 20080411
  Receipt Date: 20080331
  Transmission Date: 20081010
  Serious: Yes (Other)
  Sender: FDA-Public Use
  Company Number: US-PFIZER INC-2008028998

PATIENT
  Sex: Male
  Weight: 95.3 kg

DRUGS (4)
  1. CHANTIX [Suspect]
     Indication: SMOKING CESSATION THERAPY
     Dates: start: 20080216, end: 20080330
  2. LEXAPRO [Concomitant]
  3. ALPRAZOLAM [Concomitant]
  4. ALL OTHER THERAPEUTIC PRODUCTS [Concomitant]

REACTIONS (9)
  - AMNESIA [None]
  - BLOOD GLUCOSE INCREASED [None]
  - HOT FLUSH [None]
  - PANIC ATTACK [None]
  - PARANOIA [None]
  - RESTLESSNESS [None]
  - TENSION [None]
  - VISION BLURRED [None]
  - VISUAL DISTURBANCE [None]
